FAERS Safety Report 8135778-7 (Version None)
Quarter: 2012Q1

REPORT INFORMATION
  Report Type: 
  Country: None (occurrence: None)
  Receive Date: 20120210
  Receipt Date: 20120131
  Transmission Date: 20120608
  Serious: Yes (Hospitalization)
  Sender: FDA-Public Use
  Company Number: 2012AP000264

PATIENT
  Age: 25 Year
  Sex: Female
  Weight: 60 kg

DRUGS (1)
  1. AMLODIPINE BESYLATE [Suspect]
     Indication: PRODUCT USED FOR UNKNOWN INDICATION
     Dosage: 40 TAB;1X;

REACTIONS (11)
  - SINUS TACHYCARDIA [None]
  - HYPOTENSION [None]
  - CONFUSIONAL STATE [None]
  - RESPIRATORY RATE DECREASED [None]
  - INTENTIONAL OVERDOSE [None]
  - DEPRESSED MOOD [None]
  - SHOCK [None]
  - PULMONARY ARTERIAL WEDGE PRESSURE INCREASED [None]
  - DRUG LEVEL INCREASED [None]
  - HYPOGLYCAEMIA [None]
  - LETHARGY [None]
